FAERS Safety Report 7025332-2 (Version None)
Quarter: 2010Q4

REPORT INFORMATION
  Report Type: 
  Country: None (occurrence: None)
  Receive Date: 20101001
  Receipt Date: 20100917
  Transmission Date: 20110411
  Serious: Yes (Death)
  Sender: FDA-Public Use
  Company Number: PHFR2010GB02757

PATIENT
  Sex: Male

DRUGS (2)
  1. CLOZARIL [Suspect]
     Indication: SCHIZOPHRENIA
     Dosage: UNK
     Route: 048
     Dates: start: 19970307
  2. CLOZARIL [Suspect]
     Dosage: 600MG DAILY
     Route: 048

REACTIONS (3)
  - ARTERIOSCLEROSIS CORONARY ARTERY [None]
  - CARDIAC FAILURE [None]
  - DUODENAL ULCER [None]
